FAERS Safety Report 5013833-8 (Version None)
Quarter: 2006Q2

REPORT INFORMATION
  Report Type: 
  Country: None (occurrence: None)
  Receive Date: 20060530
  Receipt Date: 20060516
  Transmission Date: 20061013
  Serious: Yes (Hospitalization)
  Sender: FDA-Public Use
  Company Number: BR-ROCHE-448388

PATIENT

DRUGS (1)
  1. FANSIDAR [Suspect]
     Indication: TOXOPLASMOSIS
     Dosage: STRENGTH AND FORMULATION REPORTED AS 500+25MG/TAB
     Dates: start: 20050415, end: 20050415

REACTIONS (2)
  - ABORTION MISSED [None]
  - DRUG EXPOSURE DURING PREGNANCY [None]
